FAERS Safety Report 4584301-2 (Version None)
Quarter: 2005Q1

REPORT INFORMATION
  Report Type: 
  Country: None (occurrence: None)
  Receive Date: 20050125
  Receipt Date: 20041027
  Transmission Date: 20050727
  Serious: No
  Sender: FDA-Public Use
  Company Number: USA041082353

PATIENT
  Age: 78 Year
  Sex: Female
  Weight: 42 kg

DRUGS (3)
  1. FORTEO [Suspect]
     Indication: OSTEOPOROSIS
     Dosage: 20 UG/1 DAY
     Dates: start: 20030101
  2. CALTRATE + D [Concomitant]
  3. PULMOCARE [Concomitant]

REACTIONS (1)
  - BLOOD CALCIUM INCREASED [None]
